FAERS Safety Report 11129422 (Version 1)
Quarter: 2015Q2

REPORT INFORMATION
  Report Type: Spontaneous
  Country: US (occurrence: US)
  Receive Date: 20150521
  Receipt Date: 20150521
  Transmission Date: 20150821
  Serious: No
  Sender: FDA-Public Use
  Company Number: US-GLAXOSMITHKLINE-US2015054976

PATIENT
  Sex: Female

DRUGS (11)
  1. XARELTO [Concomitant]
     Active Substance: RIVAROXABAN
  2. MUCINEX [Concomitant]
     Active Substance: GUAIFENESIN
  3. LASIX [Concomitant]
     Active Substance: FUROSEMIDE
  4. SPIRIVA [Concomitant]
     Active Substance: TIOTROPIUM BROMIDE MONOHYDRATE
  5. XOPENEX [Concomitant]
     Active Substance: LEVALBUTEROL HYDROCHLORIDE
  6. VITAMIN B [Concomitant]
     Active Substance: VITAMIN B
  7. BREO ELLIPTA [Suspect]
     Active Substance: FLUTICASONE FUROATE\VILANTEROL TRIFENATATE
     Indication: PRODUCT USED FOR UNKNOWN INDICATION
     Dosage: 1 PUFF(S), 1D
     Route: 055
     Dates: start: 2015
  8. GABAPENTIN. [Concomitant]
     Active Substance: GABAPENTIN
  9. PREDNISONE. [Concomitant]
     Active Substance: PREDNISONE
  10. CALCIUM SUPPLEMENT [Concomitant]
     Active Substance: CALCIUM
  11. DALIRESP [Concomitant]
     Active Substance: ROFLUMILAST

REACTIONS (4)
  - Malaise [Recovering/Resolving]
  - Dyspnoea [Recovering/Resolving]
  - Overdose [Unknown]
  - Fatigue [Recovering/Resolving]
